FAERS Safety Report 4674156-X (Version None)
Quarter: 2005Q2

REPORT INFORMATION
  Report Type: 
  Country: None (occurrence: None)
  Receive Date: 20050524
  Receipt Date: 20050512
  Transmission Date: 20051028
  Serious: Yes (Life-Threatening, Other)
  Sender: FDA-Public Use
  Company Number: MC200500388

PATIENT
  Age: 44 Year
  Sex: Male
  Weight: 54.4 kg

DRUGS (4)
  1. ANGIOMAX [Suspect]
     Dosage: 0.75 MG/KG, BOLUS, IV BOLUS
     Route: 040
  2. ASA (ACETYSALICYLIC ACID) [Concomitant]
  3. PLAVIX [Concomitant]
  4. STATIN [Concomitant]

REACTIONS (4)
  - BRADYCARDIA [None]
  - CARDIAC ARREST [None]
  - CARDIAC PROCEDURE COMPLICATION [None]
  - HYPOTENSION [None]
